FAERS Safety Report 9497842 (Version 1)
Quarter: 2013Q3

REPORT INFORMATION
  Report Type: Spontaneous
  Country: US (occurrence: US)
  Receive Date: 20130904
  Receipt Date: 20130904
  Transmission Date: 20140515
  Serious: No
  Sender: FDA-Public Use
  Company Number: US-AMGEN-USASP2013059675

PATIENT
  Age: 34 Year
  Sex: Female

DRUGS (1)
  1. ENBREL [Suspect]
     Indication: ANKYLOSING SPONDYLITIS
     Dosage: UNK
     Route: 065
     Dates: start: 20130712

REACTIONS (6)
  - Anxiety [Unknown]
  - Muscle spasms [Unknown]
  - Rash [Unknown]
  - Wheezing [Unknown]
  - Respiratory disorder [Unknown]
  - Injection site reaction [Unknown]
